FAERS Safety Report 14731534 (Version 2)
Quarter: 2021Q2

REPORT INFORMATION
  Report Type: Spontaneous
  Country: US (occurrence: US)
  Receive Date: 20180407
  Receipt Date: 20210608
  Transmission Date: 20210716
  Serious: Yes (Disabling)
  Sender: FDA-Public Use
  Company Number: US-TEVA-2018-US-877889

PATIENT
  Age: 65 Year
  Sex: Female

DRUGS (20)
  1. DOCETAXEL ACCORD [Suspect]
     Active Substance: DOCETAXEL
     Indication: BREAST CANCER FEMALE
     Dosage: NUMBER OF CYCLE ? 5, DOSE 155MG ADMINISTRATION DATE IS 09?FEB?2016
     Route: 042
     Dates: start: 201602, end: 201605
  2. KEFLEX [Concomitant]
     Active Substance: CEPHALEXIN
     Dates: start: 2013
  3. MECLIZINE [Concomitant]
     Active Substance: MECLIZINE HYDROCHLORIDE
     Dates: start: 2013
  4. LUNESTA [Concomitant]
     Active Substance: ESZOPICLONE
     Dates: start: 2013
  5. DOXORUBICIN [Suspect]
     Active Substance: DOXORUBICIN
     Indication: BREAST CANCER FEMALE
     Dosage: NUMBER OF CYCLE ? 5
     Route: 042
     Dates: start: 201602, end: 201605
  6. BENADRYL [Concomitant]
     Active Substance: DIPHENHYDRAMINE HYDROCHLORIDE
     Dates: start: 2013
  7. SEROQUEL [Concomitant]
     Active Substance: QUETIAPINE FUMARATE
     Dates: start: 2013
  8. IMODIUM [Concomitant]
     Active Substance: LOPERAMIDE HYDROCHLORIDE
     Dates: start: 2013
  9. OXYCODONE [Concomitant]
     Active Substance: OXYCODONE
     Dates: start: 2013
  10. CYMBALTA [Concomitant]
     Active Substance: DULOXETINE HYDROCHLORIDE
     Dates: start: 2013
  11. COMPEZINE [Concomitant]
     Dates: start: 2013
  12. CONTRAVE [Concomitant]
     Active Substance: BUPROPION HYDROCHLORIDE\NALTREXONE HYDROCHLORIDE
     Dates: start: 2016
  13. QUETIAPINE. [Concomitant]
     Active Substance: QUETIAPINE
     Dates: start: 2015, end: 201811
  14. CYCLOPHOSPHAMIDE. [Suspect]
     Active Substance: CYCLOPHOSPHAMIDE
     Indication: BREAST CANCER FEMALE
     Dosage: NUMBER OF CYCLE ? 5
     Route: 042
     Dates: start: 201602, end: 201605
  15. AMITRIPTYLINE [Concomitant]
     Active Substance: AMITRIPTYLINE
     Dates: start: 2013
  16. LIDOCAINE. [Concomitant]
     Active Substance: LIDOCAINE
     Dates: start: 2013
  17. DEXAMETHASONE. [Concomitant]
     Active Substance: DEXAMETHASONE
     Dates: start: 2013
  18. DOCETAXEL SAGENT [Suspect]
     Active Substance: DOCETAXEL
     Indication: BREAST CANCER FEMALE
     Dosage: NUMBER OF CYCLE ? 5, 01?MAR?2016: 127MG, 22?MAR?2016: 128MG, 12?APR?2016: 129MG,  3?MAY?2016: 31MG
     Route: 042
     Dates: start: 201602, end: 201605
  19. LEVOTHYROXINE. [Concomitant]
     Active Substance: LEVOTHYROXINE
     Indication: THYROID DISORDER
     Dates: start: 2012
  20. TOPIRAMATE. [Concomitant]
     Active Substance: TOPIRAMATE
     Dates: start: 2014

REACTIONS (9)
  - Alopecia areata [Not Recovered/Not Resolved]
  - Weight increased [Unknown]
  - Diarrhoea [Recovered/Resolved]
  - Epistaxis [Unknown]
  - Hair texture abnormal [Not Recovered/Not Resolved]
  - Hair colour changes [Not Recovered/Not Resolved]
  - Madarosis [Not Recovered/Not Resolved]
  - Fatigue [Unknown]
  - Stomatitis [Unknown]

NARRATIVE: CASE EVENT DATE: 2016
